FAERS Safety Report 4451760-5 (Version None)
Quarter: 2004Q3

REPORT INFORMATION
  Report Type: 
  Country: None (occurrence: None)
  Receive Date: 20040812
  Receipt Date: 20040503
  Transmission Date: 20050211
  Serious: No
  Sender: FDA-Public Use
  Company Number: USA040566548

PATIENT
  Age: 68 Year
  Sex: Male

DRUGS (2)
  1. CIALIS [Suspect]
     Dosage: 20 MG AS NEEDED
     Dates: start: 20040405
  2. GLUCOPHAGE [Concomitant]

REACTIONS (1)
  - DRUG INEFFECTIVE [None]
